FAERS Safety Report 18634404 (Version 1)
Quarter: 2020Q4

REPORT INFORMATION
  Report Type: Spontaneous
  Country: US (occurrence: US)
  Receive Date: 20201218
  Receipt Date: 20201218
  Transmission Date: 20210114
  Serious: Yes (Hospitalization)
  Sender: FDA-Public Use
  Company Number: None

PATIENT
  Age: 90 Year
  Sex: Female
  Weight: 53.5 kg

DRUGS (1)
  1. BAMLANIVIMAB. [Suspect]
     Active Substance: BAMLANIVIMAB
     Indication: COVID-19
     Dates: start: 20201214, end: 20201214

REACTIONS (13)
  - Hypertension [None]
  - Oxygen saturation decreased [None]
  - Agitation [None]
  - Mental impairment [None]
  - Infusion related reaction [None]
  - Tachypnoea [None]
  - Tachycardia [None]
  - Leukocytosis [None]
  - Subdural haematoma [None]
  - Chest X-ray abnormal [None]
  - Lethargy [None]
  - Confusional state [None]
  - Pyrexia [None]

NARRATIVE: CASE EVENT DATE: 20201214
